FAERS Safety Report 26077255 (Version 1)
Quarter: 2025Q4

REPORT INFORMATION
  Report Type: Report from Study
  Country: AU (occurrence: AU)
  Receive Date: 20251121
  Receipt Date: 20251121
  Transmission Date: 20260118
  Serious: Yes (Other)
  Sender: GILEAD
  Company Number: AU-GILEAD-2025-0737866

PATIENT
  Age: 53 Year
  Sex: Male

DRUGS (16)
  1. TENOFOVIR DISOPROXIL FUMARATE [Suspect]
     Active Substance: TENOFOVIR DISOPROXIL FUMARATE
     Indication: HIV infection
     Dosage: UNK
     Route: 065
  2. SPIRONOLACTONE [Concomitant]
     Active Substance: SPIRONOLACTONE
     Dosage: 12.5MG DAILY
  3. VALACYCLOVIR HYDROCHLORIDE [Concomitant]
     Active Substance: VALACYCLOVIR HYDROCHLORIDE
     Dosage: 500MG BD
  4. VALIUM [Concomitant]
     Active Substance: DIAZEPAM
     Dosage: 5MG PRN
  5. MELATONIN [Concomitant]
     Active Substance: MELATONIN
     Dosage: 2-4MG NOCTE PRN
  6. VERAPAMIL [Concomitant]
     Active Substance: VERAPAMIL HYDROCHLORIDE
     Dosage: 180MG DAILY
  7. CANDESARTAN [Concomitant]
     Active Substance: CANDESARTAN
     Dosage: 8MG DAILY
  8. MOCLOBEMIDE [Concomitant]
     Active Substance: MOCLOBEMIDE
     Dosage: 300MG BD
  9. PULMICORT TURBUHALER [Concomitant]
     Active Substance: BUDESONIDE
     Dosage: 200MCG I PUFF BD
  10. TEMAZEPAM [Concomitant]
     Active Substance: TEMAZEPAM
     Dosage: 10MG NOCTE PRN
  11. VIAGRA [Concomitant]
     Active Substance: SILDENAFIL CITRATE
     Dosage: 100MG PRN
  12. ALBUTEROL SULFATE [Concomitant]
     Active Substance: ALBUTEROL SULFATE
     Dosage: 100MCG II PUFFS QID
  13. VITAMIN D NOS [Concomitant]
     Active Substance: CHOLECALCIFEROL\ERGOCALCIFEROL
     Dosage: 2000 IU DAILY
  14. FISH OIL [COD-LIVER OIL] [Concomitant]
     Dosage: I DAILY
  15. DOLUTEGRAVIR [Concomitant]
     Active Substance: DOLUTEGRAVIR
     Dosage: 50MG
  16. MARAVIROC [Concomitant]
     Active Substance: MARAVIROC
     Dosage: 300MG TWICE DAILY

REACTIONS (1)
  - Seizure [Unknown]
